FAERS Safety Report 19052903 (Version 1)
Quarter: 2021Q1

REPORT INFORMATION
  Report Type: Spontaneous
  Country: AT (occurrence: AT)
  Receive Date: 20210325
  Receipt Date: 20210325
  Transmission Date: 20210420
  Serious: Yes (Death, Other)
  Sender: FDA-Public Use
  Company Number: AT-CELLTRION INC.-2021AT003786

PATIENT

DRUGS (10)
  1. TRASTUZUMAB (UNKNOWN) [Suspect]
     Active Substance: TRASTUZUMAB
     Dosage: SYSTEMIC THERAPY
     Dates: start: 201810, end: 201903
  2. CISPLATIN. [Suspect]
     Active Substance: CISPLATIN
     Indication: ADENOCARCINOMA GASTRIC
  3. PACLITAXEL. [Suspect]
     Active Substance: PACLITAXEL
     Indication: METASTATIC GASTRIC CANCER
     Dosage: 2ND LINE THERAPY 6 CYCLES
     Dates: start: 201904, end: 201910
  4. RAMUCIRUMAB [Suspect]
     Active Substance: RAMUCIRUMAB
     Indication: METASTATIC GASTRIC CANCER
     Dosage: 2ND LINE THERAPY 6 CYCLES
     Dates: start: 201904, end: 201910
  5. TRASTUZUMAB (UNKNOWN) [Suspect]
     Active Substance: TRASTUZUMAB
     Indication: HER2 POSITIVE GASTRIC CANCER
     Dosage: FIRST LINE THERAPY 6 CYCLES
     Route: 065
     Dates: start: 201609, end: 201703
  6. CAPECITABINE. [Suspect]
     Active Substance: CAPECITABINE
     Indication: ADENOCARCINOMA GASTRIC
     Dosage: SYSTEMIC THERAPY
     Dates: start: 201810, end: 201903
  7. RAMUCIRUMAB [Suspect]
     Active Substance: RAMUCIRUMAB
     Dosage: MAINTENANCE THERAPY
     Dates: start: 201910, end: 201912
  8. CISPLATIN. [Suspect]
     Active Substance: CISPLATIN
     Indication: HER2 POSITIVE GASTRIC CANCER
     Dosage: FIRST LINE THERAPY 6 CYCLES
     Dates: start: 201609, end: 201703
  9. TRASTUZUMAB (UNKNOWN) [Suspect]
     Active Substance: TRASTUZUMAB
     Indication: ADENOCARCINOMA GASTRIC
     Dosage: MAINTENANCE THERAPY
     Route: 065
     Dates: start: 201703, end: 201810
  10. CAPECITABINE. [Suspect]
     Active Substance: CAPECITABINE
     Indication: HER2 POSITIVE GASTRIC CANCER
     Dosage: FIRST LINE THERAPY 6 CYCLES
     Dates: start: 201609, end: 201703

REACTIONS (15)
  - Metastatic gastric cancer [Fatal]
  - Adenocarcinoma [Fatal]
  - Disease progression [Unknown]
  - Disease progression [Unknown]
  - Ileus [Unknown]
  - Disease progression [Fatal]
  - Metastases to peritoneum [Unknown]
  - Palmar-plantar erythrodysaesthesia syndrome [Unknown]
  - Metastases to liver [Unknown]
  - White blood cell count decreased [Unknown]
  - Metastases to lymph nodes [Unknown]
  - Infection [Unknown]
  - Metastases to lung [Unknown]
  - Therapy partial responder [Unknown]
  - Colostomy [Unknown]

NARRATIVE: CASE EVENT DATE: 201810
